FAERS Safety Report 16926417 (Version 1)
Quarter: 2019Q4

REPORT INFORMATION
  Report Type: Spontaneous
  Country: US (occurrence: US)
  Receive Date: 20191016
  Receipt Date: 20191016
  Transmission Date: 20200122
  Serious: Yes (Other)
  Sender: FDA-Public Use
  Company Number: NVSC2019US002165

PATIENT
  Age: 19 Year
  Sex: Male

DRUGS (1)
  1. BUPROPION. [Suspect]
     Active Substance: BUPROPION
     Indication: PRODUCT USED FOR UNKNOWN INDICATION
     Dosage: 40 TABLETS OF 150 MG AND TOTAL DOSE OF 9 GM,
     Route: 065

REACTIONS (4)
  - Status epilepticus [Recovered/Resolved]
  - Suicide attempt [Unknown]
  - Overdose [Unknown]
  - Electrocardiogram QT prolonged [Recovered/Resolved]
